FAERS Safety Report 22866591 (Version 2)
Quarter: 2024Q1

REPORT INFORMATION
  Report Type: Spontaneous
  Country: DE (occurrence: DE)
  Receive Date: 20230825
  Receipt Date: 20240208
  Transmission Date: 20240409
  Serious: Yes (Other)
  Sender: FDA-Public Use
  Company Number: DE-SANDOZ-SDZ2023DE008047

PATIENT
  Age: 8 Decade

DRUGS (3)
  1. DEXAMETHASONE [Suspect]
     Active Substance: DEXAMETHASONE
     Indication: Plasma cell myeloma
     Dosage: DOSAGE TEXT: UNK
     Route: 065
     Dates: start: 20210301, end: 20221015
  2. REVLIMID [Suspect]
     Active Substance: LENALIDOMIDE
     Indication: Plasma cell myeloma
     Route: 065
     Dates: start: 20210301, end: 20221015
  3. DARZALEX [Suspect]
     Active Substance: DARATUMUMAB
     Indication: Plasma cell myeloma
     Dosage: UNK (UNSPECIFIED FREQUENCY)
     Route: 065
     Dates: start: 20210301, end: 20221015

REACTIONS (3)
  - Cytopenia [Unknown]
  - Drug intolerance [Unknown]
  - Intentional product use issue [Unknown]
